FAERS Safety Report 17240338 (Version 1)
Quarter: 2019Q4

REPORT INFORMATION
  Report Type: Spontaneous
  Country: US (occurrence: US)
  Receive Date: 20191211
  Receipt Date: 20191211
  Transmission Date: 20200122
  Serious: No
  Sender: FDA-Public Use
  Company Number: None

PATIENT
  Age: 32 Year
  Sex: Male

DRUGS (1)
  1. JULUCA [Suspect]
     Active Substance: DOLUTEGRAVIR SODIUM\RILPIVIRINE HYDROCHLORIDE
     Indication: HIV INFECTION
     Dosage: ?          OTHER DOSE:50/25MG;?
     Route: 048
     Dates: start: 20190619

REACTIONS (2)
  - Memory impairment [None]
  - Extra dose administered [None]

NARRATIVE: CASE EVENT DATE: 20191211
